FAERS Safety Report 8549067-X (Version None)
Quarter: 2012Q3

REPORT INFORMATION
  Report Type: 
  Country: None (occurrence: None)
  Receive Date: 20120730
  Receipt Date: 20120724
  Transmission Date: 20120928
  Serious: Yes (Other)
  Sender: FDA-Public Use
  Company Number: US-PFIZER INC-2012166730

PATIENT
  Sex: Female
  Weight: 67.12 kg

DRUGS (16)
  1. COUMADIN [Concomitant]
     Indication: ANTICOAGULANT THERAPY
     Dosage: 2 MG, DAILY
  2. LISINOPRIL [Concomitant]
     Indication: CARDIAC DISORDER
     Dosage: 2.5 MG, 2X/DAY
  3. BENTYL [Concomitant]
     Indication: ABDOMINAL PAIN UPPER
     Dosage: 20 MG, 3X/DAY
  4. DILTIAZEM [Concomitant]
     Indication: FLUID RETENTION
     Dosage: 300 MG, DAILY
  5. DILT-CD [Concomitant]
     Indication: HYPERTENSION
     Dosage: 300 MG, DAILY
     Route: 048
  6. BUMEX [Concomitant]
     Indication: FLUID RETENTION
     Dosage: 2 MG, 2X/DAY
  7. LORTAB [Concomitant]
     Indication: PAIN
     Dosage: 10/500 MG, EVERY SIX HOURS
  8. METOPROLOL [Concomitant]
     Indication: CARDIAC DISORDER
     Dosage: 100 MG, 2X/DAY
  9. POTASSIUM [Concomitant]
     Indication: BLOOD POTASSIUM DECREASED
     Dosage: 80 MEQ, EVERY SIX HOURS
     Route: 048
  10. GEMFIBROZIL [Concomitant]
     Dosage: 600 MG, UNK
  11. METOPROLOL [Concomitant]
     Indication: HYPERTENSION
  12. DILTIAZEM [Concomitant]
     Indication: HYPERTENSION
  13. PREMARIN [Suspect]
     Indication: HORMONE REPLACEMENT THERAPY
     Dosage: UNK
     Route: 067
  14. METFORMIN [Concomitant]
     Indication: DIABETES MELLITUS
     Dosage: 1000 MG, 2X/DAY
  15. PLAVIX [Concomitant]
     Indication: CARDIAC DISORDER
     Dosage: 75 MG, UNK
  16. LIPOSYN [Concomitant]
     Indication: BLOOD TRIGLYCERIDES ABNORMAL
     Dosage: 150 MG, UNK

REACTIONS (1)
  - CEREBROVASCULAR ACCIDENT [None]
